FAERS Safety Report 18216862 (Version 1)
Quarter: 2020Q3

REPORT INFORMATION
  Report Type: Spontaneous
  Country: CA (occurrence: CA)
  Receive Date: 20200901
  Receipt Date: 20200901
  Transmission Date: 20201103
  Serious: Yes (Hospitalization, Other)
  Sender: FDA-Public Use
  Company Number: CA-ACCORD-198289

PATIENT
  Age: 61 Year
  Sex: Female

DRUGS (17)
  1. MELATONIN [Concomitant]
     Active Substance: MELATONIN
  2. COLECALCIFEROL [Concomitant]
     Active Substance: CHOLECALCIFEROL
  3. CALCIUM CARBONATE. [Concomitant]
     Active Substance: CALCIUM CARBONATE
  4. ROSUVASTATIN/ROSUVASTATIN CALCIUM [Concomitant]
     Active Substance: ROSUVASTATIN CALCIUM
  5. HYDROMORPHONE/HYDROMORPHONE HYDROCHLORIDE [Concomitant]
     Active Substance: HYDROMORPHONE
  6. CISPLATIN. [Suspect]
     Active Substance: CISPLATIN
     Indication: PRODUCT USED FOR UNKNOWN INDICATION
     Dosage: STRENGTH: 10MG/10ML, 50MG/50ML,?100MG/100ML
  7. EMPAGLIFLOZIN [Concomitant]
     Active Substance: EMPAGLIFLOZIN
  8. ETOPOSIDE. [Suspect]
     Active Substance: ETOPOSIDE
     Indication: PRODUCT USED FOR UNKNOWN INDICATION
  9. PERINDOPRIL [Concomitant]
     Active Substance: PERINDOPRIL
  10. TYLENOL [Concomitant]
     Active Substance: ACETAMINOPHEN
  11. PANTOPRAZOLE [Concomitant]
     Active Substance: PANTOPRAZOLE
  12. METFORMIN [Concomitant]
     Active Substance: METFORMIN HYDROCHLORIDE
  13. SULFA [Concomitant]
     Active Substance: UNSPECIFIED INGREDIENT
  14. EZETIMIBE. [Concomitant]
     Active Substance: EZETIMIBE
  15. TRIMETHOPRIM. [Concomitant]
     Active Substance: TRIMETHOPRIM
  16. SENNOSIDE A+B [Concomitant]
     Active Substance: SENNOSIDES A AND B
  17. PREDNISONE. [Concomitant]
     Active Substance: PREDNISONE

REACTIONS (4)
  - Nausea [Recovering/Resolving]
  - Dehydration [Recovering/Resolving]
  - Abdominal pain [Recovering/Resolving]
  - Vomiting [Recovering/Resolving]
